FAERS Safety Report 5469855-6 (Version None)
Quarter: 2007Q3

REPORT INFORMATION
  Report Type: 
  Country: None (occurrence: None)
  Receive Date: 20070927
  Receipt Date: 20070914
  Transmission Date: 20080115
  Serious: Yes (Hospitalization, Other)
  Sender: FDA-Public Use
  Company Number: US-AMGEN-US235876

PATIENT
  Sex: Male

DRUGS (4)
  1. PROCRIT [Suspect]
     Indication: ANAEMIA
     Route: 065
     Dates: start: 20030101
  2. CYCLOSPORINE [Concomitant]
  3. IMURAN [Concomitant]
     Dates: end: 20070716
  4. PREDNISONE [Concomitant]

REACTIONS (5)
  - COMPLICATIONS OF TRANSPLANTED KIDNEY [None]
  - MARROW HYPERPLASIA [None]
  - NEPHROGENIC ANAEMIA [None]
  - OCCULT BLOOD POSITIVE [None]
  - THERAPEUTIC RESPONSE DECREASED [None]
